FAERS Safety Report 6120114-8 (Version None)
Quarter: 2009Q1

REPORT INFORMATION
  Report Type: 
  Country: None (occurrence: None)
  Receive Date: 20090312
  Receipt Date: 20090227
  Transmission Date: 20090719
  Serious: Yes (Hospitalization)
  Sender: FDA-Public Use
  Company Number: B0563705A

PATIENT
  Age: 56 Year
  Sex: Male

DRUGS (5)
  1. ALBUTEROL SULFATE [Suspect]
     Indication: WHEEZING
  2. PROPOFOL [Concomitant]
  3. FENTANYL-25 [Concomitant]
  4. ROCURONIUM BROMIDE [Concomitant]
  5. SEVOFLURANE [Concomitant]

REACTIONS (5)
  - HYPERTHERMIA MALIGNANT [None]
  - METABOLIC ACIDOSIS [None]
  - PROCEDURAL HYPERTENSION [None]
  - RESPIRATORY ACIDOSIS [None]
  - TACHYCARDIA [None]
